FAERS Safety Report 8456209-3 (Version None)
Quarter: 2012Q2

REPORT INFORMATION
  Report Type: 
  Country: None (occurrence: None)
  Receive Date: 20120621
  Receipt Date: 20120608
  Transmission Date: 20120825
  Serious: Yes (Hospitalization, Other)
  Sender: FDA-Public Use
  Company Number: CA-INCYTE CORPORATION-2012IN000094

PATIENT
  Sex: Male
  Weight: 83 kg

DRUGS (4)
  1. INC424 [Suspect]
     Indication: MYELOFIBROSIS
     Dosage: 15 MG, BID
     Route: 048
     Dates: start: 20111201, end: 20120108
  2. INC424 [Suspect]
     Dosage: 15 MG, QD (10 MG AM AND 5 MG PM)
     Route: 048
  3. IBUPROFEN [Suspect]
     Indication: BACK PAIN
  4. ASPIRIN [Concomitant]
     Dosage: UNK
     Dates: end: 20120109

REACTIONS (2)
  - LUNG ADENOCARCINOMA [None]
  - ABDOMINAL WALL HAEMATOMA [None]
